FAERS Safety Report 9984308 (Version 1)
Quarter: 2014Q1

REPORT INFORMATION
  Report Type: Report from Study
  Country: US (occurrence: US)
  Receive Date: 20140304
  Receipt Date: 20140304
  Transmission Date: 20141002
  Serious: No
  Sender: FDA-Public Use
  Company Number: US-ABBVIE-13P-163-1090337-00

PATIENT
  Age: 87 Year
  Sex: Male

DRUGS (8)
  1. HUMIRA [Suspect]
     Indication: ANKYLOSING SPONDYLITIS
     Dates: start: 20130509
  2. ALBUTEROL SULFATE [Concomitant]
     Indication: CHRONIC OBSTRUCTIVE PULMONARY DISEASE
     Route: 055
  3. DILTIAZEM [Concomitant]
     Indication: BLOOD PRESSURE
  4. BENAZEPRIL [Concomitant]
     Indication: BLOOD PRESSURE
     Dosage: 40 MG DAILY
  5. XOPENEX [Concomitant]
     Indication: OBSTRUCTIVE AIRWAYS DISORDER
  6. ADVAIR HFA [Concomitant]
     Indication: CHRONIC OBSTRUCTIVE PULMONARY DISEASE
     Route: 055
  7. OMEPRAZOLE [Concomitant]
     Indication: DYSPEPSIA
  8. ALENDRONATE [Concomitant]
     Indication: BONE DISORDER
     Dosage: EVERY SUNDAY

REACTIONS (1)
  - Restlessness [Not Recovered/Not Resolved]
